FAERS Safety Report 8771705 (Version 3)
Quarter: 2013Q4

REPORT INFORMATION
  Report Type: Spontaneous
  Country: US (occurrence: US)
  Receive Date: 20120910
  Receipt Date: 20131031
  Transmission Date: 20140711
  Serious: Yes (Death, Life-Threatening, Hospitalization, Other)
  Sender: FDA-Public Use
  Company Number: US-009507513-1208USA012618

PATIENT
  Age: 59 Year
  Sex: Female

DRUGS (15)
  1. ISENTRESS [Suspect]
     Indication: HIV INFECTION
     Dosage: 400 MG, BID
     Route: 048
     Dates: start: 201206
  2. MAGNESIUM (UNSPECIFIED) [Concomitant]
  3. PANTOPRAZOLE [Concomitant]
  4. GABAPENTIN [Concomitant]
  5. OXYCODONE [Concomitant]
  6. AMITRIPTYLINE HYDROCHLORIDE [Concomitant]
  7. DILTIAZEM HYDROCHLORIDE [Concomitant]
  8. FLUDROCORTISONE [Concomitant]
  9. HYDROCORTISONE [Concomitant]
  10. LISINOPRIL [Concomitant]
  11. MIRTAZAPINE [Concomitant]
  12. SPIRONOLACTONE [Concomitant]
  13. FLUTICASONE [Concomitant]
  14. TRUVADA [Concomitant]
  15. HYDROCODONE [Concomitant]

REACTIONS (7)
  - Shock [Unknown]
  - Sepsis [Unknown]
  - Death [Fatal]
  - Respiratory failure [Fatal]
  - Renal failure acute [Fatal]
  - Fatigue [Fatal]
  - Fatigue [Fatal]
